FAERS Safety Report 9777961 (Version 1)
Quarter: 2013Q4

REPORT INFORMATION
  Report Type: Spontaneous
  Country: US (occurrence: US)
  Receive Date: 20131223
  Receipt Date: 20131223
  Transmission Date: 20140711
  Serious: No
  Sender: FDA-Public Use
  Company Number: US-009507513-1312USA009912

PATIENT
  Sex: Female

DRUGS (2)
  1. NUVARING [Suspect]
     Dosage: 1 DF, Q3W; 1 RING FOR 3 WEEKS FOLLOWED BY WEEK FREE BEFORE
     Route: 067
     Dates: start: 201311
  2. NUVARING [Suspect]
     Dosage: 1 DF, Q3W; 1 RING FOR 3 WEEKS FOLLOWED BY WEEK FREE BEFORE
     Route: 067
     Dates: start: 201312

REACTIONS (1)
  - Menstruation delayed [Unknown]
